FAERS Safety Report 9400776 (Version 3)
Quarter: 2013Q3

REPORT INFORMATION
  Report Type: Report from Study
  Country: US (occurrence: US)
  Receive Date: 20130715
  Receipt Date: 20130904
  Transmission Date: 20140515
  Serious: Yes (Life-Threatening, Hospitalization)
  Sender: FDA-Public Use
  Company Number: US-PFIZER INC-2013202591

PATIENT
  Age: 80 Year
  Sex: Female
  Weight: 71.89 kg

DRUGS (13)
  1. SUTENT [Suspect]
     Indication: MALIGNANT MELANOMA
     Dosage: 37.5 MG, 1X/DAY
     Route: 048
     Dates: start: 20130619, end: 20130627
  2. SUTENT [Suspect]
     Dosage: 25 MG, 1X/DAY
     Route: 048
     Dates: start: 20130702, end: 20130708
  3. ACETYLSALICYLIC ACID [Concomitant]
     Dosage: UNK
     Dates: start: 20100927
  4. ATENOLOL [Concomitant]
     Dosage: UNK
     Dates: start: 20100927
  5. DOXAZOSIN MESILATE [Concomitant]
     Dosage: UNK
     Dates: start: 20100927
  6. ISOSORBIDE MONONITRATE ER [Concomitant]
     Dosage: UNK
     Dates: start: 20100927
  7. LISINOPRIL [Concomitant]
     Dosage: UNK
     Dates: start: 20100927
  8. LOVASTATIN [Concomitant]
     Dosage: UNK
     Dates: start: 20100927
  9. METFORMIN HYDROCHLORIDE [Concomitant]
     Dosage: UNK
     Dates: start: 20100927
  10. PLAVIX [Concomitant]
     Dosage: UNK
     Dates: start: 20100927
  11. LORAZEPAM [Concomitant]
     Dosage: UNK
     Dates: start: 20130530
  12. ONDANSETRON HYDROCHLORIDE [Concomitant]
     Dosage: UNK
     Dates: start: 20130619
  13. PROCHLORPERAZINE MALEATE [Concomitant]
     Dosage: UNK
     Dates: start: 20130619

REACTIONS (1)
  - Dehydration [Recovered/Resolved]
